FAERS Safety Report 7792977-1 (Version None)
Quarter: 2011Q4

REPORT INFORMATION
  Report Type: 
  Country: None (occurrence: None)
  Receive Date: 20111003
  Receipt Date: 20110927
  Transmission Date: 20120403
  Serious: Yes (Hospitalization)
  Sender: FDA-Public Use
  Company Number: PHEH2011US05306

PATIENT
  Sex: Female
  Weight: 77.098 kg

DRUGS (4)
  1. LISINOPRIL [Concomitant]
     Dosage: 10 MG, UNK
  2. ZOLPIDEM [Concomitant]
     Dosage: 10 MG, UNK
  3. EXJADE [Suspect]
     Indication: MYELODYSPLASTIC SYNDROME
     Dosage: 1500 MG, DAILY
     Route: 048
     Dates: start: 20110308
  4. PROCRIT [Concomitant]
     Dosage: 2000 U/ML, UNK

REACTIONS (1)
  - HEART RATE INCREASED [None]
